FAERS Safety Report 22031386 (Version 2)
Quarter: 2023Q2

REPORT INFORMATION
  Report Type: Spontaneous
  Country: GB (occurrence: GB)
  Receive Date: 20230224
  Receipt Date: 20230415
  Transmission Date: 20230721
  Serious: Yes (Hospitalization, Other)
  Sender: FDA-Public Use
  Company Number: GB-BAYER-2023A015898

PATIENT
  Age: 89 Year
  Sex: Male

DRUGS (30)
  1. FUROSEMIDE [Suspect]
     Active Substance: FUROSEMIDE
     Indication: Amyloidosis senile
     Dosage: 20 MILLIGRAM, ONCE A DAY
     Route: 048
     Dates: start: 20210428
  2. FUROSEMIDE [Suspect]
     Active Substance: FUROSEMIDE
     Indication: Cardiac amyloidosis
  3. DIGOXIN [Suspect]
     Active Substance: DIGOXIN
     Indication: Atrial fibrillation
     Dosage: 62.5 MICROGRAM, ONCE A DAY
     Route: 048
     Dates: start: 202201
  4. XARELTO [Suspect]
     Active Substance: RIVAROXABAN
     Indication: Atrial fibrillation
     Dosage: 15 MILLIGRAM, ONCE A DAY
     Route: 048
     Dates: end: 20220805
  5. XARELTO [Suspect]
     Active Substance: RIVAROXABAN
     Dosage: 15 MILLIGRAM, ONCE A DAY
     Route: 048
     Dates: start: 20220817
  6. BIMATOPROST [Concomitant]
     Active Substance: BIMATOPROST
     Indication: Glaucoma
     Dosage: 0.1 MILLIGRAM, ONCE A DAY
     Route: 061
     Dates: start: 2000
  7. BIMATOPROST [Concomitant]
     Active Substance: BIMATOPROST
     Indication: Open angle glaucoma
  8. BISOPROLOL [Concomitant]
     Active Substance: BISOPROLOL
     Indication: Atrial fibrillation
     Dosage: 2.5 MILLIGRAM, ONCE A DAY
     Route: 048
     Dates: start: 20201007
  9. BRIMONIDINE [Concomitant]
     Active Substance: BRIMONIDINE TARTRATE
     Indication: Glaucoma
     Dosage: 0.2 PERCENT, TWO TIMES A DAY
     Route: 061
     Dates: start: 2000
  10. BRIMONIDINE [Concomitant]
     Active Substance: BRIMONIDINE TARTRATE
     Indication: Open angle glaucoma
  11. BRINZOLAMIDE [Concomitant]
     Active Substance: BRINZOLAMIDE
     Indication: Glaucoma
     Dosage: 10 DOSAGE FORM, TWO TIMES A DAY
     Route: 061
     Dates: start: 2000
  12. CALCIUM CARBONATE [Concomitant]
     Active Substance: CALCIUM CARBONATE
     Indication: Product used for unknown indication
     Dosage: UNK
     Route: 065
  13. COLCHICINE [Concomitant]
     Active Substance: COLCHICINE
     Indication: Gout
     Dosage: 500 MICROGRAM
     Route: 065
  14. CHOLECALCIFEROL [Concomitant]
     Active Substance: CHOLECALCIFEROL
     Indication: Product used for unknown indication
     Dosage: UNK
     Route: 065
  15. DOCUSATE [Concomitant]
     Active Substance: DOCUSATE
     Indication: Constipation
     Dosage: UNK
     Route: 065
  16. FORMOTEROL FUMARATE [Concomitant]
     Active Substance: FORMOTEROL FUMARATE
     Indication: Asthma
     Dosage: 100 MICROGRAM, TWO TIMES A DAY
     Route: 055
  17. BECLOMETHASONE\FORMOTEROL [Concomitant]
     Active Substance: BECLOMETHASONE\FORMOTEROL
     Indication: Asthma
     Dosage: 100 MICROGRAM, TWO TIMES A DAY
     Route: 055
     Dates: start: 202003
  18. HYPROMELLOSES [Concomitant]
     Active Substance: HYPROMELLOSES
     Indication: Lacrimal cyst
     Dosage: 1 DOSAGE FORM, FOUR TIMES/DAY
     Route: 047
     Dates: start: 20210723
  19. HYPROMELLOSES [Concomitant]
     Active Substance: HYPROMELLOSES
     Indication: Cyst
  20. LOPERAMIDE [Concomitant]
     Active Substance: LOPERAMIDE
     Indication: Gastrointestinal disorder
     Dosage: 2 MILLIGRAM, AS NECESSARY
     Route: 048
     Dates: start: 202106
  21. Voltarene [Concomitant]
     Indication: Back pain
     Dosage: 1 DOSAGE FORM, AS NECESSARY
     Route: 061
     Dates: start: 2022
  22. OMEPRAZOLE [Concomitant]
     Active Substance: OMEPRAZOLE
     Indication: Product used for unknown indication
     Dosage: UNK
     Route: 065
  23. PREDNISOLONE [Concomitant]
     Active Substance: PREDNISOLONE
     Indication: Asthma
     Dosage: 5 MILLIGRAM, TWO TIMES A DAY
     Route: 048
  24. PREDNISOLONE [Concomitant]
     Active Substance: PREDNISOLONE
     Dosage: 30 MILLIGRAM, ONCE A DAY
     Route: 048
  25. PREDNISOLONE [Concomitant]
     Active Substance: PREDNISOLONE
     Dosage: 85 MILLIGRAM, ONCE A DAY
     Route: 048
  26. PREDNISOLONE [Concomitant]
     Active Substance: PREDNISOLONE
     Dosage: 50 MILLIGRAM, ONCE A DAY
     Route: 048
  27. PREDNISOLONE [Concomitant]
     Active Substance: PREDNISOLONE
     Dosage: 70 MILLIGRAM, ONCE A DAY
     Route: 048
     Dates: start: 20220818
  28. PREDNISOLONE [Concomitant]
     Active Substance: PREDNISOLONE
     Dosage: 15 MILLIGRAM, ONCE A DAY
     Route: 048
     Dates: start: 20221018
  29. PROTHROMBIN [Concomitant]
     Active Substance: PROTHROMBIN
     Indication: Product used for unknown indication
     Dosage: UNK
     Route: 065
  30. TRANEXAMIC ACID [Concomitant]
     Active Substance: TRANEXAMIC ACID
     Indication: Immune thrombocytopenia
     Dosage: UNK
     Route: 065

REACTIONS (15)
  - Immune thrombocytopenia [Recovered/Resolved with Sequelae]
  - Haemorrhagic diathesis [Recovered/Resolved with Sequelae]
  - Contusion [Unknown]
  - Mouth haemorrhage [Unknown]
  - Platelet count decreased [Recovered/Resolved]
  - Epistaxis [Unknown]
  - Oral mucosal blistering [Unknown]
  - Gastrointestinal disorder [Recovered/Resolved with Sequelae]
  - Back pain [Recovered/Resolved with Sequelae]
  - Blood creatinine increased [Recovered/Resolved with Sequelae]
  - Gout [Recovered/Resolved with Sequelae]
  - Dyspnoea [Recovered/Resolved with Sequelae]
  - Cardiac amyloidosis [Recovered/Resolved with Sequelae]
  - Acute kidney injury [Recovered/Resolved with Sequelae]
  - Anaemia [Unknown]

NARRATIVE: CASE EVENT DATE: 20200116
